FAERS Safety Report 20755812 (Version 3)
Quarter: 2022Q2

REPORT INFORMATION
  Report Type: Report from Study
  Country: US (occurrence: US)
  Receive Date: 20220427
  Receipt Date: 20220517
  Transmission Date: 20220721
  Serious: No
  Sender: FDA-Public Use
  Company Number: US-NOVARTISTESTPH-NVSC2022US096256

PATIENT
  Age: 18 Year
  Sex: Female

DRUGS (1)
  1. KESIMPTA [Suspect]
     Active Substance: OFATUMUMAB
     Indication: Multiple sclerosis
     Dosage: UNK
     Route: 058
     Dates: start: 20220318

REACTIONS (5)
  - Migraine [Unknown]
  - Pain in extremity [Unknown]
  - Abdominal discomfort [Unknown]
  - Heavy menstrual bleeding [Unknown]
  - Nausea [Unknown]

NARRATIVE: CASE EVENT DATE: 20220318
